FAERS Safety Report 7597713-X (Version None)
Quarter: 2011Q3

REPORT INFORMATION
  Report Type: 
  Country: None (occurrence: None)
  Receive Date: 20110708
  Receipt Date: 20110629
  Transmission Date: 20111222
  Serious: Yes (Hospitalization)
  Sender: FDA-Public Use
  Company Number: US-GLAXOSMITHKLINE-A0935213A

PATIENT
  Age: 64 Year
  Sex: Male
  Weight: 84.5 kg

DRUGS (9)
  1. PAZOPANIB [Suspect]
     Indication: CHONDROSARCOMA
     Dosage: 800MG PER DAY
     Route: 048
     Dates: start: 20110512, end: 20110609
  2. ASCORBIC ACID [Concomitant]
     Indication: SUPPLEMENTATION THERAPY
     Dosage: 1TAB PER DAY
     Route: 048
     Dates: start: 20100101
  3. COMPAZINE [Concomitant]
     Indication: NAUSEA
     Dosage: 10MG AS REQUIRED
     Route: 048
     Dates: start: 20110609
  4. MULTI-VITAMIN [Concomitant]
     Indication: SUPPLEMENTATION THERAPY
     Dosage: 1TAB PER DAY
     Route: 048
     Dates: start: 20100101
  5. TOPROL-XL [Concomitant]
     Indication: HYPERTENSION
     Route: 048
     Dates: start: 20070101
  6. PRAVACHOL [Concomitant]
     Indication: BLOOD CHOLESTEROL INCREASED
     Route: 048
     Dates: start: 20110513
  7. HYDROCHLOROTHIAZIDE [Concomitant]
     Indication: HYPERTENSION
     Route: 048
     Dates: start: 20070101
  8. ASPIRIN [Concomitant]
     Indication: PROPHYLAXIS
     Dosage: 325MG PER DAY
     Route: 048
     Dates: start: 20110101
  9. IMODIUM [Concomitant]
     Indication: DIARRHOEA
     Dosage: 2TAB AS REQUIRED
     Route: 048
     Dates: start: 20110526

REACTIONS (2)
  - COUGH [None]
  - DEHYDRATION [None]
